FAERS Safety Report 4823156-5 (Version None)
Quarter: 2005Q4

REPORT INFORMATION
  Report Type: 
  Country: None (occurrence: None)
  Receive Date: 20051027
  Receipt Date: 20050720
  Transmission Date: 20060501
  Serious: Yes (Other)
  Sender: FDA-Public Use
  Company Number: HQWYE441125JUL05

PATIENT
  Age: 63 Year
  Sex: Female

DRUGS (4)
  1. PREMARIN [Suspect]
     Indication: INSOMNIA
  2. PREMARIN [Suspect]
     Indication: IRRITABILITY
  3. PROVERA [Suspect]
     Indication: INSOMNIA
  4. PROVERA [Suspect]
     Indication: IRRITABILITY

REACTIONS (1)
  - BREAST CANCER [None]
